FAERS Safety Report 13523782 (Version 3)
Quarter: 2019Q2

REPORT INFORMATION
  Report Type: Spontaneous
  Country: US (occurrence: US)
  Receive Date: 20170508
  Receipt Date: 20190405
  Transmission Date: 20190711
  Serious: No
  Sender: FDA-Public Use
  Company Number: US-VIFOR (INTERNATIONAL) INC.-VIT-2017-03530

PATIENT
  Age: 76 Year
  Sex: Male

DRUGS (19)
  1. ATENOLOL. [Concomitant]
     Active Substance: ATENOLOL
  2. LATANOPROST. [Concomitant]
     Active Substance: LATANOPROST
  3. FOLITAB [Concomitant]
  4. ALPHAGAN P [Concomitant]
     Active Substance: BRIMONIDINE TARTRATE
  5. ATORVASTATIN [Concomitant]
     Active Substance: ATORVASTATIN
  6. COMBIGAN [Concomitant]
     Active Substance: BRIMONIDINE TARTRATE\TIMOLOL MALEATE
  7. LOSARTAN POTASSIUM. [Concomitant]
     Active Substance: LOSARTAN POTASSIUM
  8. TAMSULIN [Concomitant]
  9. GLIPIZIDE. [Concomitant]
     Active Substance: GLIPIZIDE
  10. VELTASSA [Suspect]
     Active Substance: PATIROMER
     Dates: start: 20170124
  11. LOVASTATIN. [Concomitant]
     Active Substance: LOVASTATIN
  12. PRAVASTATIN. [Concomitant]
     Active Substance: PRAVASTATIN
  13. VELTASSA [Suspect]
     Active Substance: PATIROMER
     Indication: HYPERKALAEMIA
     Route: 048
     Dates: start: 20170221
  14. TIMOLOL. [Concomitant]
     Active Substance: TIMOLOL
  15. VITAMIN D2 [Concomitant]
     Active Substance: ERGOCALCIFEROL
  16. LOSARTAN POTASSIUM. [Concomitant]
     Active Substance: LOSARTAN POTASSIUM
  17. TRADJENTA [Concomitant]
     Active Substance: LINAGLIPTIN
  18. AMLODIPINE [Concomitant]
     Active Substance: AMLODIPINE BESYLATE
  19. FLUTICASONE. [Concomitant]
     Active Substance: FLUTICASONE

REACTIONS (3)
  - Inappropriate schedule of product administration [Unknown]
  - Weight decreased [Not Recovered/Not Resolved]
  - Constipation [Not Recovered/Not Resolved]

NARRATIVE: CASE EVENT DATE: 20170124
